FAERS Safety Report 25317865 (Version 1)
Quarter: 2025Q2

REPORT INFORMATION
  Report Type: Spontaneous
  Country: US (occurrence: US)
  Receive Date: 20250515
  Receipt Date: 20250515
  Transmission Date: 20250716
  Serious: No
  Sender: ABBVIE
  Company Number: US-ABBVIE-6271619

PATIENT
  Sex: Female

DRUGS (8)
  1. CARAFATE [Suspect]
     Active Substance: SUCRALFATE
     Indication: Dyspepsia
     Route: 065
  2. ZAFIRLUKAST [Concomitant]
     Active Substance: ZAFIRLUKAST
     Indication: Product used for unknown indication
  3. CROMOLYN [Concomitant]
     Active Substance: CROMOLYN
     Indication: Product used for unknown indication
  4. NORTRIPTYLINE [Concomitant]
     Active Substance: NORTRIPTYLINE
     Indication: Product used for unknown indication
  5. NEXIUM [Concomitant]
     Active Substance: ESOMEPRAZOLE MAGNESIUM
     Indication: Product used for unknown indication
  6. ADVAIR HFA [Concomitant]
     Active Substance: FLUTICASONE PROPIONATE\SALMETEROL XINAFOATE
     Indication: Product used for unknown indication
  7. NALTREXONE [Concomitant]
     Active Substance: NALTREXONE
     Indication: Product used for unknown indication
  8. GABAPENTIN [Concomitant]
     Active Substance: GABAPENTIN
     Indication: Product used for unknown indication

REACTIONS (11)
  - Rubber sensitivity [Unknown]
  - Drug ineffective [Unknown]
  - Ehlers-Danlos syndrome [Unknown]
  - Pruritus [Unknown]
  - Dyspepsia [Unknown]
  - Flushing [Unknown]
  - COVID-19 [Unknown]
  - Brain fog [Unknown]
  - Idiopathic urticaria [Unknown]
  - Drug hypersensitivity [Unknown]
  - Food allergy [Unknown]
